FAERS Safety Report 6725675-3 (Version None)
Quarter: 2010Q2

REPORT INFORMATION
  Report Type: 
  Country: None (occurrence: None)
  Receive Date: 20100514
  Receipt Date: 20100501
  Transmission Date: 20101027
  Serious: Yes (Death)
  Sender: FDA-Public Use
  Company Number: US-ROCHE-703000

PATIENT
  Sex: Male
  Weight: 72.6 kg

DRUGS (2)
  1. CAPECITABINE [Suspect]
     Indication: COLORECTAL CANCER
     Dosage: STRENGTH: 500+150 MG
     Route: 048
     Dates: start: 20090901
  2. OXALIPLATIN [Concomitant]

REACTIONS (1)
  - DEATH [None]
